FAERS Safety Report 8480848-7 (Version None)
Quarter: 2012Q2

REPORT INFORMATION
  Report Type: 
  Country: None (occurrence: None)
  Receive Date: 20120620
  Receipt Date: 20120611
  Transmission Date: 20120825
  Serious: Yes (Hospitalization)
  Sender: FDA-Public Use
  Company Number: 2012SP029998

PATIENT
  Age: 67 Year
  Sex: Male
  Weight: 58 kg

DRUGS (2)
  1. SYCREST (ASENAPINE /05706901/) [Suspect]
     Indication: BIPOLAR I DISORDER
     Dosage: 10 MG; QD; PO
     Route: 048
     Dates: start: 20111213, end: 20111216
  2. VALPROATE SODIUM [Concomitant]

REACTIONS (2)
  - DRUG INEFFECTIVE [None]
  - MANIA [None]
